FAERS Safety Report 9701409 (Version 2)
Quarter: 2015Q3

REPORT INFORMATION
  Report Type: Spontaneous
  Country: US (occurrence: US)
  Receive Date: 20131121
  Receipt Date: 20150803
  Transmission Date: 20151125
  Serious: No
  Sender: FDA-Public Use
  Company Number: US-GILEAD-2008-0016868

PATIENT
  Age: 86 Year
  Sex: Female
  Weight: 45.36 kg

DRUGS (16)
  1. HYDROCHLOROTHIAZIDE. [Concomitant]
     Active Substance: HYDROCHLOROTHIAZIDE
     Route: 048
  2. TRUSOPT [Concomitant]
     Active Substance: DORZOLAMIDE HYDROCHLORIDE
     Route: 047
  3. TRAVATAN [Concomitant]
     Active Substance: TRAVOPROST
     Route: 047
  4. DAILY MULTIVITAMIN [Concomitant]
     Active Substance: VITAMINS
     Route: 048
  5. VITAMIN C [Concomitant]
     Active Substance: ASCORBIC ACID
     Route: 048
  6. COUMADIN [Concomitant]
     Active Substance: WARFARIN SODIUM
     Dosage: AS DIRECTED
     Route: 048
  7. NITROGLYCERIN. [Concomitant]
     Active Substance: NITROGLYCERIN
     Dosage: AS DIRECTED
     Route: 060
  8. COMBIVENT [Concomitant]
     Active Substance: ALBUTEROL SULFATE\IPRATROPIUM BROMIDE
     Dosage: AS DIRECTED
     Route: 055
  9. RESTORIL [Concomitant]
     Active Substance: TEMAZEPAM
     Dosage: HS
     Route: 048
  10. NITROGLYCERIN. [Concomitant]
     Active Substance: NITROGLYCERIN
     Route: 048
  11. VERAPAMIL [Concomitant]
     Active Substance: VERAPAMIL HYDROCHLORIDE
     Route: 048
  12. VITAMIN B COMPLEX [Concomitant]
     Active Substance: CYANOCOBALAMIN\DEXPANTHENOL\NIACINAMIDE\PYRIDOXINE HYDROCHLORIDE\RIBOFLAVIN 5^-PHOSPHATE SODIUM\THIAMINE HYDROCHLORIDE\VITAMIN B COMPLEX
     Dosage: AS DIRECTED
     Route: 048
  13. CALCIUM +D [Concomitant]
     Active Substance: CALCIUM\VITAMIN D
     Route: 048
  14. LETAIRIS [Suspect]
     Active Substance: AMBRISENTAN
     Indication: PULMONARY ARTERIAL HYPERTENSION
     Route: 048
     Dates: start: 20080425
  15. FLECAINIDE ACETATE. [Concomitant]
     Active Substance: FLECAINIDE ACETATE
     Route: 048
  16. OXYGEN. [Concomitant]
     Active Substance: OXYGEN
     Dosage: PRN
     Route: 055

REACTIONS (2)
  - Peripheral swelling [Unknown]
  - Asthenia [Unknown]
